FAERS Safety Report 16177795 (Version 1)
Quarter: 2019Q2

REPORT INFORMATION
  Report Type: Spontaneous
  Country: DE (occurrence: DE)
  Receive Date: 20190410
  Receipt Date: 20190410
  Transmission Date: 20190711
  Serious: Yes (Other)
  Sender: FDA-Public Use
  Company Number: DE-TEVA-2019-DE-1033999

PATIENT
  Age: 73 Year
  Sex: Male
  Weight: 74 kg

DRUGS (4)
  1. PREDNISOLON [Suspect]
     Active Substance: PREDNISOLONE
     Dosage: PREDNISOLONE 80MG, 2MG TO 0S 2019, THEN DISCONTINUE UNTIL 02/2019
     Dates: end: 201902
  2. CARVEDILOL 1A PHARMA [Concomitant]
     Active Substance: CARVEDILOL
     Dosage: PERMANENT MEDICATION
     Route: 048
  3. RAMIPRIL ABZ 5MG [Concomitant]
     Dosage: PERMANENT MEDICATION
     Route: 048
  4. HERZ ASS-RATIOPHARM [Concomitant]
     Dosage: 100 MILLIGRAM DAILY; PERMANENT MEDICATION
     Route: 048

REACTIONS (3)
  - Pancreatitis [Unknown]
  - Cholecystitis acute [Unknown]
  - Cholecystectomy [Unknown]

NARRATIVE: CASE EVENT DATE: 20180528
